FAERS Safety Report 7357522-3 (Version None)
Quarter: 2011Q1

REPORT INFORMATION
  Report Type: 
  Country: None (occurrence: None)
  Receive Date: 20110317
  Receipt Date: 20100712
  Transmission Date: 20110831
  Serious: Yes (Other)
  Sender: FDA-Public Use
  Company Number: US-BAYER-201016027NA

PATIENT
  Sex: Female
  Weight: 101.59 kg

DRUGS (8)
  1. YAZ [Suspect]
     Indication: CONTRACEPTION
     Dosage: 1 DF, QD
     Route: 048
     Dates: start: 20070701, end: 20090101
  2. APRI [Concomitant]
     Dosage: PREVIOUS OC USE
     Dates: start: 20020204, end: 20050320
  3. YASMIN [Suspect]
     Indication: ACNE
  4. IBUPROFEN [Concomitant]
  5. YAZ [Suspect]
     Indication: ACNE
  6. VALTREX [Concomitant]
     Indication: HERPES SIMPLEX
     Dosage: 1 MG, UNK
     Route: 048
     Dates: start: 20021123
  7. YASMIN [Suspect]
     Indication: CONTRACEPTION
     Dosage: 1 DF, QD
     Dates: start: 20010101, end: 20060101
  8. DESOGEN [Concomitant]
     Dosage: PREVIOUS OC USE
     Dates: start: 20010106, end: 20020106

REACTIONS (2)
  - CHOLECYSTECTOMY [None]
  - CARDIOVASCULAR DISORDER [None]
